FAERS Safety Report 6874974-3 (Version None)
Quarter: 2010Q2

REPORT INFORMATION
  Report Type: 
  Country: None (occurrence: None)
  Receive Date: 20100616
  Receipt Date: 20090901
  Transmission Date: 20101027
  Serious: Yes (Death)
  Sender: FDA-Public Use
  Company Number: 1000008634

PATIENT
  Sex: Male

DRUGS (1)
  1. NAMENDA [Suspect]
     Dates: start: 20050101, end: 20050101

REACTIONS (1)
  - DEATH [None]
